FAERS Safety Report 6338464-9 (Version None)
Quarter: 2009Q3

REPORT INFORMATION
  Report Type: 
  Country: None (occurrence: None)
  Receive Date: 20090901
  Receipt Date: 20090821
  Transmission Date: 20100115
  Serious: Yes (Hospitalization)
  Sender: FDA-Public Use
  Company Number: 090824-0000934

PATIENT
  Age: 31 Year
  Sex: Male

DRUGS (4)
  1. COGENTIN [Suspect]
     Indication: DRUG USE FOR UNKNOWN INDICATION
     Dosage: 2 MG; 1X; IM
     Route: 030
     Dates: start: 19910530, end: 20090530
  2. HALDOL [Suspect]
     Indication: DRUG USE FOR UNKNOWN INDICATION
     Dosage: 10 MG; IM
     Route: 030
     Dates: start: 19910530
  3. ATIVAN [Suspect]
     Indication: DRUG USE FOR UNKNOWN INDICATION
     Dosage: 2 MG; IM
     Route: 030
     Dates: start: 19910530
  4. PROZAC [Concomitant]

REACTIONS (6)
  - AFFECTIVE DISORDER [None]
  - AMNESIA [None]
  - BLOOD GROWTH HORMONE DECREASED [None]
  - COGNITIVE DISORDER [None]
  - POST-TRAUMATIC STRESS DISORDER [None]
  - TARDIVE DYSKINESIA [None]
